FAERS Safety Report 17753824 (Version 4)
Quarter: 2024Q2

REPORT INFORMATION
  Report Type: Report from Study
  Country: TH (occurrence: TH)
  Receive Date: 20200507
  Receipt Date: 20240424
  Transmission Date: 20240716
  Serious: Yes (Hospitalization)
  Sender: FDA-Public Use
  Company Number: TH-BAYER-2020-068934

PATIENT
  Sex: Male

DRUGS (2)
  1. NEXAVAR [Suspect]
     Active Substance: SORAFENIB
     Indication: Hepatocellular carcinoma
     Dosage: 400 MG, BID (2 TABS IN THE MORNING AND 2 TABS IN THE EVENING)
     Route: 048
  2. WARFARIN [Concomitant]
     Active Substance: WARFARIN
     Dosage: UNK
     Dates: end: 202004

REACTIONS (3)
  - Cerebrovascular disorder [Recovered/Resolved]
  - Vision blurred [Recovered/Resolved]
  - Overdose [None]

NARRATIVE: CASE EVENT DATE: 20200410
